FAERS Safety Report 5879373-9 (Version None)
Quarter: 2008Q3

REPORT INFORMATION
  Report Type: 
  Country: None (occurrence: None)
  Receive Date: 20080911
  Receipt Date: 20080911
  Transmission Date: 20090109
  Serious: Yes (Hospitalization)
  Sender: FDA-Public Use
  Company Number: None

PATIENT
  Sex: Female
  Weight: 55.1 kg

DRUGS (3)
  1. CARBOPLATIN [Suspect]
     Dosage: 737 MG
     Dates: start: 20080723, end: 20080903
  2. DOCETAXEL [Suspect]
     Dosage: 116 MG
     Dates: end: 20080903
  3. TAXOL [Suspect]
     Dosage: 93 MG
     Dates: end: 20080820

REACTIONS (2)
  - NEUTROPHIL COUNT DECREASED [None]
  - WHITE BLOOD CELL COUNT DECREASED [None]
